FAERS Safety Report 7293403-1 (Version None)
Quarter: 2011Q1

REPORT INFORMATION
  Report Type: 
  Country: None (occurrence: None)
  Receive Date: 20110215
  Receipt Date: 20110202
  Transmission Date: 20110831
  Serious: Yes (Life-Threatening, Hospitalization, Disabling)
  Sender: FDA-Public Use
  Company Number: DK-WATSON-2011-01864

PATIENT
  Sex: Female

DRUGS (4)
  1. CIPROFLOXACIN HCL [Suspect]
     Indication: DIARRHOEA
     Dosage: 1 DF, SINGLE
     Route: 048
     Dates: start: 20101006, end: 20101006
  2. TEGRETOL [Suspect]
     Indication: EPILEPSY
     Dosage: 1 DF, DAILY
     Route: 048
     Dates: start: 19950101, end: 20101009
  3. IMODIUM                            /00384302/ [Suspect]
     Indication: DIARRHOEA
     Dosage: 2 MG, SINGLE
     Route: 048
     Dates: start: 20101006, end: 20101006
  4. PRIMPERAN                          /00041901/ [Suspect]
     Indication: NAUSEA
     Dosage: 1 DF, SINGLE
     Route: 048
     Dates: start: 20101006, end: 20101006

REACTIONS (2)
  - TOXIC EPIDERMAL NECROLYSIS [None]
  - TRANSIENT ISCHAEMIC ATTACK [None]
